FAERS Safety Report 10545400 (Version 1)
Quarter: 2014Q4

REPORT INFORMATION
  Report Type: Spontaneous
  Country: US (occurrence: US)
  Receive Date: 20141027
  Receipt Date: 20141027
  Transmission Date: 20150529
  Serious: Yes (Hospitalization)
  Sender: FDA-Public Use
  Company Number: US-ELI_LILLY_AND_COMPANY-US201410006394

PATIENT
  Sex: Female

DRUGS (1)
  1. CYMBALTA [Suspect]
     Active Substance: DULOXETINE HYDROCHLORIDE
     Indication: DEPRESSION
     Dosage: 60 MG, QD
     Route: 065
     Dates: end: 201408

REACTIONS (5)
  - Asthenia [Unknown]
  - Depression [Unknown]
  - Feeling abnormal [Unknown]
  - Malaise [Unknown]
  - Apathy [Unknown]

NARRATIVE: CASE EVENT DATE: 201205
